FAERS Safety Report 6699729-4 (Version None)
Quarter: 2010Q2

REPORT INFORMATION
  Report Type: 
  Country: None (occurrence: None)
  Receive Date: 20100428
  Receipt Date: 20100420
  Transmission Date: 20101027
  Serious: No
  Sender: FDA-Public Use
  Company Number: 2010BI001219

PATIENT
  Age: 47 Year
  Sex: Female

DRUGS (2)
  1. TYSABRI [Suspect]
     Indication: MULTIPLE SCLEROSIS
     Route: 042
     Dates: start: 20080401
  2. LUNESTA [Concomitant]
     Indication: SLEEP DISORDER THERAPY

REACTIONS (5)
  - ASTHENIA [None]
  - BURSITIS [None]
  - DEPRESSION [None]
  - FATIGUE [None]
  - MIGRAINE [None]
